FAERS Safety Report 6175325-2 (Version None)
Quarter: 2009Q2

REPORT INFORMATION
  Report Type: 
  Country: None (occurrence: None)
  Receive Date: 20090429
  Receipt Date: 20090420
  Transmission Date: 20091009
  Serious: Yes (Hospitalization)
  Sender: FDA-Public Use
  Company Number: 2009SP007877

PATIENT
  Age: 65 Year
  Sex: Female

DRUGS (16)
  1. TEMOZOLOMIDE [Suspect]
     Indication: METASTATIC MALIGNANT MELANOMA
     Dosage: 300 MG;QD;PO; 200 MG/M2;QD
     Route: 048
     Dates: start: 20090218, end: 20090222
  2. TEMOZOLOMIDE [Suspect]
     Indication: METASTATIC MALIGNANT MELANOMA
     Dosage: 300 MG;QD;PO; 200 MG/M2;QD
     Route: 048
     Dates: start: 20090318
  3. ABT-888 (INVESTIGATIONAL DRUG) [Suspect]
     Indication: METASTATIC MALIGNANT MELANOMA
     Dosage: 40 MG;BID;PO, 40 MG; QD
     Route: 048
     Dates: start: 20090218, end: 20090224
  4. ABT-888 (INVESTIGATIONAL DRUG) [Suspect]
     Indication: METASTATIC MALIGNANT MELANOMA
     Dosage: 40 MG;BID;PO, 40 MG; QD
     Route: 048
     Dates: start: 20090318
  5. LEVOTHYROXINE SODIUM [Concomitant]
  6. RISEDRONATE SODIUM [Concomitant]
  7. IBUPROFEN [Concomitant]
  8. METHOCARBAMOL [Concomitant]
  9. VICODIN [Concomitant]
  10. CALCIUM CARBONATE [Concomitant]
  11. LORAZEPAM [Concomitant]
  12. SENNA ALEXANDRINA [Concomitant]
  13. DOCUSATE SODIUM [Concomitant]
  14. HYDROCHLOROTHIAZIDE [Concomitant]
  15. NORGESIC [Concomitant]
  16. DEXAMETHASONE 4MG TAB [Concomitant]

REACTIONS (4)
  - DEHYDRATION [None]
  - NAUSEA [None]
  - NEUTROPENIA [None]
  - VOMITING [None]
